FAERS Safety Report 20222790 (Version 2)
Quarter: 2022Q1

REPORT INFORMATION
  Report Type: Spontaneous
  Country: US (occurrence: US)
  Receive Date: 20211223
  Receipt Date: 20220106
  Transmission Date: 20220424
  Serious: Yes (Other)
  Sender: FDA-Public Use
  Company Number: US-009507513-2112USA007717

PATIENT
  Age: 72 Year
  Sex: Female

DRUGS (1)
  1. KEYTRUDA [Suspect]
     Active Substance: PEMBROLIZUMAB
     Indication: Lip squamous cell carcinoma
     Dosage: 200 MILLIGRAM, EVERY 3 WEEKS

REACTIONS (3)
  - Immune thrombocytopenia [Recovered/Resolved with Sequelae]
  - Immune-mediated enterocolitis [Recovered/Resolved with Sequelae]
  - Immune-mediated dermatitis [Recovered/Resolved with Sequelae]
